FAERS Safety Report 13423368 (Version 5)
Quarter: 2018Q2

REPORT INFORMATION
  Report Type: Report from Study
  Country: US (occurrence: US)
  Receive Date: 20170410
  Receipt Date: 20180625
  Transmission Date: 20180711
  Serious: Yes (Death, Hospitalization, Other)
  Sender: FDA-Public Use
  Company Number: US-ASTELLAS-2017US013028

PATIENT
  Age: 83 Year
  Sex: Male

DRUGS (6)
  1. SENNOSIDE                          /00571901/ [Concomitant]
     Active Substance: SENNOSIDES A AND B
     Indication: CONSTIPATION
     Dosage: 17.2 MG, TWICE DAILY AS NEEDED
     Route: 048
  2. COLACE [Concomitant]
     Active Substance: DOCUSATE SODIUM
     Indication: PRODUCT USED FOR UNKNOWN INDICATION
     Route: 048
  3. ENZALUTAMIDE [Suspect]
     Active Substance: ENZALUTAMIDE
     Indication: HORMONE-REFRACTORY PROSTATE CANCER
     Route: 048
     Dates: start: 20161109, end: 20180502
  4. LOPRESSOR [Concomitant]
     Active Substance: METOPROLOL TARTRATE
     Indication: PRODUCT USED FOR UNKNOWN INDICATION
     Route: 048
  5. POLYETHYLENE GLYCOL [Concomitant]
     Active Substance: POLYETHYLENE GLYCOLS
     Indication: PRODUCT USED FOR UNKNOWN INDICATION
     Dosage: UNK UNK, UNKNOWN FREQ.
     Route: 065
  6. NORCO [Concomitant]
     Active Substance: ACETAMINOPHEN\HYDROCODONE BITARTRATE
     Indication: PRODUCT USED FOR UNKNOWN INDICATION
     Dosage: 1 DF, EVERY 6 HOURS AS NEEDED
     Route: 048

REACTIONS (11)
  - Diverticulitis [Unknown]
  - Large intestinal ulcer [Unknown]
  - Malignant neoplasm progression [Fatal]
  - Rectal ulcer [Unknown]
  - Hypoacusis [Not Recovered/Not Resolved]
  - Intentional dose omission [Unknown]
  - Rectal haemorrhage [Not Recovered/Not Resolved]
  - Staphylococcal infection [Unknown]
  - Urinary tract infection [Unknown]
  - Intestinal polyp [Not Recovered/Not Resolved]
  - Intestinal mass [Unknown]

NARRATIVE: CASE EVENT DATE: 20180414
